FAERS Safety Report 7068973 (Version 2)
Quarter: 2014Q1

REPORT INFORMATION
  Report Type: Spontaneous
  Country: US (occurrence: None)
  Receive Date: 20090724
  Receipt Date: 20140224
  Transmission Date: 20141002
  Serious: Yes (Other)
  Sender: FDA-Public Use
  Company Number: 2009S1005515

PATIENT
  Age: 77 Year
  Sex: Female
  Weight: 66.04 kg

DRUGS (8)
  1. EZ PREP (EZ PREP) (75 MILLILITRE (S), ORAL SOLUTION) [Suspect]
     Indication: COLONOSCOPY
     Route: 048
     Dates: start: 20070223, end: 20070223
  2. CARDIZEM (DILTIAZEM) (UNKNOWN) (DILTIAZEM) [Concomitant]
  3. LISINOPRIL (LISINOPRIL) [Concomitant]
  4. FOSAMAX (ALENDRONATE SODIUM) [Concomitant]
  5. ZANTAC (RANITIDINE HYDROCHLORIDE) [Concomitant]
  6. LIPITOR (ATORVASTATIN CALCIUM) [Concomitant]
  7. ASPIRIN (ACETYLSALICYLIC ACID) [Concomitant]
  8. METHOTREXATE (METHOTREXATE) [Concomitant]

REACTIONS (11)
  - Renal impairment [None]
  - Diverticulum intestinal [None]
  - Haemorrhoids [None]
  - Sinusitis [None]
  - Dehydration [None]
  - Vomiting [None]
  - Abdominal discomfort [None]
  - Dysgeusia [None]
  - Renal failure acute [None]
  - Nephrosclerosis [None]
  - Renal failure chronic [None]
